FAERS Safety Report 4448347-7 (Version None)
Quarter: 2004Q3

REPORT INFORMATION
  Report Type: 
  Country: None (occurrence: None)
  Receive Date: 20040913
  Receipt Date: 20040826
  Transmission Date: 20050211
  Serious: Yes (Hospitalization)
  Sender: FDA-Public Use
  Company Number: 2004230389DE

PATIENT
  Age: 19 Year
  Sex: Male
  Weight: 64.8 kg

DRUGS (3)
  1. GENOTROPIN [Suspect]
     Indication: HYPOPITUITARISM
     Dosage: 1.5 U, QD, SUBCUTANEOUS
     Route: 058
     Dates: start: 20030704
  2. LEVOTHYROXINE SODIUM [Concomitant]
  3. DEXAMYTREX (GENTAMICIN SULFATE, DEXAMETHASONE SODIUM PHOSPHATE) [Concomitant]

REACTIONS (1)
  - RETINAL DETACHMENT [None]
